FAERS Safety Report 5362464-9 (Version None)
Quarter: 2007Q2

REPORT INFORMATION
  Report Type: 
  Country: None (occurrence: None)
  Receive Date: 20070619
  Receipt Date: 20070613
  Transmission Date: 20071010
  Serious: Yes (Hospitalization)
  Sender: FDA-Public Use
  Company Number: FR-ASTRAZENECA-2007CG00907

PATIENT
  Age: 12 Year
  Sex: Female
  Weight: 44 kg

DRUGS (2)
  1. TENORMIN [Suspect]
     Route: 048
     Dates: start: 20070602, end: 20070602
  2. DOLIPRANE [Suspect]
     Indication: PHARYNGOLARYNGEAL PAIN

REACTIONS (3)
  - BRADYCARDIA [None]
  - HYPOTENSION [None]
  - WRONG DRUG ADMINISTERED [None]
